FAERS Safety Report 5186877-3 (Version None)
Quarter: 2006Q4

REPORT INFORMATION
  Report Type: 
  Country: None (occurrence: None)
  Receive Date: 20061213
  Receipt Date: 20061204
  Transmission Date: 20070319
  Serious: Yes (Hospitalization, Other)
  Sender: FDA-Public Use
  Company Number: 2005107428

PATIENT
  Age: 64 Year
  Sex: Female

DRUGS (5)
  1. NEURONTIN [Suspect]
     Indication: BACK PAIN
     Dosage: 300 MG (100 MG, 3 IN 1 D)
     Dates: start: 20000712
  2. NEURONTIN [Suspect]
     Indication: PAIN IN EXTREMITY
     Dosage: 300 MG (100 MG, 3 IN 1 D)
     Dates: start: 20000712
  3. ELAVIL [Suspect]
  4. ZYPREXA [Concomitant]
  5. XANAX [Concomitant]

REACTIONS (4)
  - DRUG INEFFECTIVE [None]
  - LOSS OF CONSCIOUSNESS [None]
  - OVERDOSE [None]
  - SUICIDE ATTEMPT [None]
